FAERS Safety Report 7969601-8 (Version None)
Quarter: 2011Q4

REPORT INFORMATION
  Report Type: 
  Country: None (occurrence: None)
  Receive Date: 20111212
  Receipt Date: 20111206
  Transmission Date: 20120403
  Serious: Yes (Hospitalization)
  Sender: FDA-Public Use
  Company Number: DE-PFIZER INC-2011217875

PATIENT
  Age: 52 Year
  Sex: Female
  Weight: 83 kg

DRUGS (5)
  1. CALCIUM CARBONATE [Concomitant]
     Indication: OSTEOPOROSIS
     Dosage: 1000 MG, 1X/DAY
  2. ERGOCALCIFEROL [Concomitant]
     Indication: OSTEOPOROSIS
     Dosage: 1000, DAILY
  3. CEFUROXIME [Suspect]
     Indication: URINARY TRACT INFECTION
     Dosage: 500, 2X/DAY
     Dates: start: 20110711
  4. AROMASIN [Suspect]
     Indication: BREAST CANCER
     Dosage: 25 MG, 1X/DAY
  5. CORTISONE [Concomitant]

REACTIONS (4)
  - HEPATITIS [None]
  - PYREXIA [None]
  - JAUNDICE [None]
  - DERMATITIS ALLERGIC [None]
